FAERS Safety Report 22081766 (Version 1)
Quarter: 2023Q1

REPORT INFORMATION
  Report Type: Spontaneous
  Country: IT (occurrence: IT)
  Receive Date: 20230310
  Receipt Date: 20230310
  Transmission Date: 20230417
  Serious: Yes (Death, Hospitalization, Other)
  Sender: FDA-Public Use
  Company Number: IT-AMGEN-ITASP2023039793

PATIENT

DRUGS (13)
  1. ADALIMUMAB [Suspect]
     Active Substance: ADALIMUMAB
     Indication: Inflammatory bowel disease
     Dosage: UNK
     Route: 065
  2. ADALIMUMAB [Suspect]
     Active Substance: ADALIMUMAB
     Indication: Crohn^s disease
  3. ADALIMUMAB [Suspect]
     Active Substance: ADALIMUMAB
     Indication: Colitis ulcerative
  4. INFLIXIMAB [Concomitant]
     Active Substance: INFLIXIMAB
     Indication: Inflammatory bowel disease
     Dosage: UNK
  5. INFLIXIMAB [Concomitant]
     Active Substance: INFLIXIMAB
     Indication: Colitis ulcerative
  6. INFLIXIMAB [Concomitant]
     Active Substance: INFLIXIMAB
     Indication: Crohn^s disease
  7. VEDOLIZUMAB [Concomitant]
     Active Substance: VEDOLIZUMAB
     Indication: Crohn^s disease
     Dosage: UNK
  8. VEDOLIZUMAB [Concomitant]
     Active Substance: VEDOLIZUMAB
     Indication: Colitis ulcerative
  9. VEDOLIZUMAB [Concomitant]
     Active Substance: VEDOLIZUMAB
     Indication: Inflammatory bowel disease
  10. USTEKINUMAB [Concomitant]
     Active Substance: USTEKINUMAB
     Indication: Inflammatory bowel disease
     Dosage: UNK
  11. USTEKINUMAB [Concomitant]
     Active Substance: USTEKINUMAB
     Indication: Colitis ulcerative
  12. USTEKINUMAB [Concomitant]
     Active Substance: USTEKINUMAB
     Indication: Crohn^s disease
  13. METHOTREXATE [Concomitant]
     Active Substance: METHOTREXATE
     Dosage: UNK

REACTIONS (26)
  - Amyloidosis [Fatal]
  - Cardiac failure [Fatal]
  - Death [Fatal]
  - Cholangiocarcinoma [Fatal]
  - Myocardial infarction [Fatal]
  - Inflammatory bowel disease [Unknown]
  - Transplant rejection [Unknown]
  - Kidney transplant rejection [Unknown]
  - Heart transplant rejection [Unknown]
  - Lung transplant rejection [Unknown]
  - Bile duct cancer [Unknown]
  - Neoplasm malignant [Unknown]
  - Cytomegalovirus infection [Unknown]
  - Malignant melanoma [Unknown]
  - Pneumonia [Unknown]
  - Renal transplant [Unknown]
  - Heart transplant [Unknown]
  - Lung transplant [Unknown]
  - Dysplasia [Unknown]
  - Neoplasm skin [Unknown]
  - Laryngeal neoplasm [Unknown]
  - Infection [Unknown]
  - Gastrointestinal infection [Unknown]
  - Upper respiratory tract infection [Unknown]
  - Skin infection [Unknown]
  - Urinary tract infection [Unknown]
